FAERS Safety Report 18915812 (Version 1)
Quarter: 2021Q1

REPORT INFORMATION
  Report Type: Spontaneous
  Country: US (occurrence: US)
  Receive Date: 20210219
  Receipt Date: 20210219
  Transmission Date: 20210420
  Serious: Yes (Other)
  Sender: FDA-Public Use
  Company Number: US-SA-2021SA050021

PATIENT
  Age: 54 Year
  Sex: Female
  Weight: 90.7 kg

DRUGS (23)
  1. XHANCE [Concomitant]
     Active Substance: FLUTICASONE PROPIONATE
  2. ACETAMINOPHEN. [Concomitant]
     Active Substance: ACETAMINOPHEN
  3. EPINEPHRINE. [Concomitant]
     Active Substance: EPINEPHRINE
  4. PROGESTERONE. [Concomitant]
     Active Substance: PROGESTERONE
  5. SINGULAIR [Concomitant]
     Active Substance: MONTELUKAST SODIUM
  6. NARCO [Concomitant]
  7. NAPROXEN. [Concomitant]
     Active Substance: NAPROXEN
  8. PRILOSEC [Concomitant]
     Active Substance: OMEPRAZOLE MAGNESIUM
  9. ESTRADIOL. [Concomitant]
     Active Substance: ESTRADIOL
  10. BUPROPION HCL [Concomitant]
     Active Substance: BUPROPION HYDROCHLORIDE
  11. BIOTIN [Concomitant]
     Active Substance: BIOTIN
  12. DIPHENHYDRAMINE. [Concomitant]
     Active Substance: DIPHENHYDRAMINE
  13. AUBAGIO [Suspect]
     Active Substance: TERIFLUNOMIDE
     Indication: MULTIPLE SCLEROSIS
     Dosage: 14 MG, QD
     Route: 048
  14. LMX4 [Concomitant]
     Active Substance: LIDOCAINE
  15. NASALCROM [Concomitant]
     Active Substance: CROMOLYN SODIUM
  16. CHLORTHALIDONE. [Concomitant]
     Active Substance: CHLORTHALIDONE
  17. CETIRIZINE HYDROCHLORIDE. [Concomitant]
     Active Substance: CETIRIZINE HYDROCHLORIDE
  18. CUVITRU [Concomitant]
     Active Substance: HUMAN IMMUNOGLOBULIN G
  19. ORACEA [DOXYCYCLINE] [Concomitant]
  20. VITAMIN B12 [Concomitant]
     Active Substance: CYANOCOBALAMIN
  21. ATIVAN [Concomitant]
     Active Substance: LORAZEPAM
  22. DULOXETINE HCL [Concomitant]
     Active Substance: DULOXETINE HYDROCHLORIDE
  23. LIPITOR [Concomitant]
     Active Substance: ATORVASTATIN CALCIUM

REACTIONS (1)
  - Omphalitis [Unknown]

NARRATIVE: CASE EVENT DATE: 20210118
